FAERS Safety Report 23616870 (Version 1)
Quarter: 2024Q1

REPORT INFORMATION
  Report Type: Spontaneous
  Country: CZ (occurrence: CZ)
  Receive Date: 20240311
  Receipt Date: 20240311
  Transmission Date: 20240410
  Serious: Yes (Life-Threatening, Other)
  Sender: FDA-Public Use
  Company Number: CZ-Accord-404664

PATIENT
  Age: 55 Year
  Sex: Female

DRUGS (7)
  1. AZACITIDINE [Suspect]
     Active Substance: AZACITIDINE
     Indication: Acute myeloid leukaemia
     Dosage: 300 MG, ONCE A DAY ON DAYS 1-14 OF A 28-DAY CYCLE
     Route: 065
     Dates: start: 202302
  2. CYTARABINE [Suspect]
     Active Substance: CYTARABINE
     Indication: Chemotherapy
     Dosage: HIGH DOSE; IN THE 3+7 REGIMENUNK
     Route: 065
     Dates: start: 202211
  3. DAUNORUBICIN [Suspect]
     Active Substance: DAUNORUBICIN
     Indication: Chemotherapy
     Dosage: IN THE 3+7 REGIMENUNK
     Route: 065
  4. HYDROXYUREA [Suspect]
     Active Substance: HYDROXYUREA
     Indication: Leukocytosis
     Dosage: UNK
     Route: 065
  5. METOCLOPRAMIDE [Suspect]
     Active Substance: METOCLOPRAMIDE
     Indication: Antiemetic supportive care
     Dosage: UNK
     Route: 065
  6. MIDOSTAURIN [Suspect]
     Active Substance: MIDOSTAURIN
     Indication: Chemotherapy
     Dosage: UNK
     Route: 065
     Dates: start: 202211
  7. ONDANSETRON [Suspect]
     Active Substance: ONDANSETRON
     Indication: Antiemetic supportive care
     Dosage: UNK
     Route: 065

REACTIONS (11)
  - Multiple organ dysfunction syndrome [Unknown]
  - Febrile neutropenia [Unknown]
  - Septic shock [Unknown]
  - Acute kidney injury [Unknown]
  - Myelosuppression [Unknown]
  - COVID-19 [Unknown]
  - Klebsiella infection [Unknown]
  - Neutropenia [Unknown]
  - Constipation [Unknown]
  - Nausea [Unknown]
  - Off label use [Unknown]
